FAERS Safety Report 8884980 (Version 5)
Quarter: 2014Q4

REPORT INFORMATION
  Report Type: Report from Study
  Country: JP (occurrence: JP)
  Receive Date: 20121030
  Receipt Date: 20141110
  Transmission Date: 20150529
  Serious: Yes (Hospitalization)
  Sender: FDA-Public Use
  Company Number: JP-BIOGENIDEC-2012BI017536

PATIENT
  Age: 20 Year
  Sex: Female

DRUGS (8)
  1. TYSABRI [Suspect]
     Active Substance: NATALIZUMAB
     Indication: RELAPSING-REMITTING MULTIPLE SCLEROSIS
     Dates: start: 20120514, end: 20120514
  2. SYMMETREL [Concomitant]
     Active Substance: AMANTADINE HYDROCHLORIDE
     Dates: start: 20101021
  3. PRIMPERAN [Concomitant]
     Active Substance: METOCLOPRAMIDE HYDROCHLORIDE
     Dates: start: 20120601
  4. LONOXIN [Concomitant]
     Dates: start: 20110620
  5. GABAPEN [Concomitant]
     Active Substance: GABAPENTIN
     Dates: start: 20110610
  6. MERISLON [Concomitant]
     Active Substance: BETAHISTINE MESILATE
     Dates: start: 20120611
  7. PAXIL [Concomitant]
     Active Substance: PAROXETINE HYDROCHLORIDE
     Dates: start: 200901
  8. ALLEGRA [Concomitant]
     Active Substance: FEXOFENADINE HYDROCHLORIDE
     Dates: start: 20120601

REACTIONS (3)
  - Mycoplasma infection [Recovered/Resolved]
  - Meningitis [Recovered/Resolved]
  - Multiple sclerosis relapse [Recovered/Resolved]

NARRATIVE: CASE EVENT DATE: 20120516
